FAERS Safety Report 11976333 (Version 1)
Quarter: 2016Q1

REPORT INFORMATION
  Report Type: Spontaneous
  Country: US (occurrence: US)
  Receive Date: 20160129
  Receipt Date: 20160129
  Transmission Date: 20160526
  Serious: No
  Sender: FDA-Public Use
  Company Number: US-BAYER-2016-018107

PATIENT
  Age: 80 Year
  Sex: Female
  Weight: 68.27 kg

DRUGS (1)
  1. ALEVE [Suspect]
     Active Substance: NAPROXEN SODIUM
     Dosage: 1 DF, PRN
     Route: 048
     Dates: start: 2014

REACTIONS (4)
  - Feeling hot [None]
  - Erythema [None]
  - Palpitations [None]
  - Off label use [None]

NARRATIVE: CASE EVENT DATE: 20160125
